FAERS Safety Report 6083112-9 (Version None)
Quarter: 2009Q1

REPORT INFORMATION
  Report Type: 
  Country: None (occurrence: None)
  Receive Date: 20090217
  Receipt Date: 20090217
  Transmission Date: 20090719
  Serious: Yes (Hospitalization)
  Sender: FDA-Public Use
  Company Number: None

PATIENT
  Age: 59 Year
  Sex: Female

DRUGS (2)
  1. GAMUNEX [Suspect]
     Indication: PANEL-REACTIVE ANTIBODY INCREASED
     Dosage: 3 G X 1 IV
     Route: 042
     Dates: start: 20080826, end: 20080826
  2. GAMUNEX [Suspect]
     Dosage: 40 G X 1 IV
     Route: 042

REACTIONS (3)
  - CARDIAC ARREST [None]
  - HYPOTENSION [None]
  - UNRESPONSIVE TO STIMULI [None]
